FAERS Safety Report 10052140 (Version 1)
Quarter: 2014Q2

REPORT INFORMATION
  Report Type: Spontaneous
  Country: US (occurrence: None)
  Receive Date: 20140401
  Receipt Date: 20140401
  Transmission Date: 20141212
  Serious: Yes (Other)
  Sender: FDA-Public Use
  Company Number: None

PATIENT
  Age: 57 Year
  Sex: Female
  Weight: 81.19 kg

DRUGS (1)
  1. MIRVASO [Suspect]
     Indication: ROSACEA
     Dosage: TO AFFECTED AREA EVERY DAY ONCE DAILY, APPLIED TO A SURFACE, USUALLY THE SKIN
     Dates: start: 20131203, end: 20140220

REACTIONS (1)
  - Dizziness [None]
